FAERS Safety Report 21888994 (Version 1)
Quarter: 2023Q1

REPORT INFORMATION
  Report Type: Report from Study
  Country: US (occurrence: US)
  Receive Date: 20230120
  Receipt Date: 20230120
  Transmission Date: 20230417
  Serious: Yes (Other)
  Sender: FDA-Public Use
  Company Number: US-ABBVIE-4273727

PATIENT
  Age: 61 Year
  Sex: Female

DRUGS (2)
  1. HUMIRA [Suspect]
     Active Substance: ADALIMUMAB
     Indication: Psoriasis
     Dosage: FORM STRENGTH: 40 MILLIGRAM
     Route: 058
  2. HUMIRA [Suspect]
     Active Substance: ADALIMUMAB
     Dosage: FORM STRENGTH: 40 MILLIGRAM
     Route: 058
     Dates: start: 20221013

REACTIONS (7)
  - Parathyroid gland operation [Unknown]
  - Influenza [Recovering/Resolving]
  - Peripheral swelling [Unknown]
  - Lower respiratory tract infection [Unknown]
  - Pain in extremity [Unknown]
  - Trigger finger [Unknown]
  - Localised infection [Recovering/Resolving]

NARRATIVE: CASE EVENT DATE: 20221201
